FAERS Safety Report 13397777 (Version 2)
Quarter: 2017Q2

REPORT INFORMATION
  Report Type: Report from Study
  Country: US (occurrence: US)
  Receive Date: 20170403
  Receipt Date: 20170428
  Transmission Date: 20170830
  Serious: Yes (Death, Hospitalization)
  Sender: FDA-Public Use
  Company Number: US-SPECTRUM PHARMACEUTICALS, INC.-16-M-US-00395

PATIENT
  Age: 74 Year
  Sex: Male

DRUGS (8)
  1. MELPHALAN HCL [Suspect]
     Active Substance: MELPHALAN HYDROCHLORIDE
     Indication: BONE MARROW CONDITIONING REGIMEN
     Dosage: 10 MG/M2, SINGLE
     Route: 042
     Dates: start: 20161005, end: 20161005
  2. AZTREONAM. [Concomitant]
     Active Substance: AZTREONAM
     Indication: EVIDENCE BASED TREATMENT
     Dosage: UNK
     Dates: start: 20170211
  3. MELPHALAN HCL [Suspect]
     Active Substance: MELPHALAN HYDROCHLORIDE
     Dosage: TARGETED TO AUC 13.5 MG/L/H, SINGLE
     Route: 042
     Dates: start: 20161011, end: 20161011
  4. GANCICLOVIR. [Suspect]
     Active Substance: GANCICLOVIR
     Indication: CYTOMEGALOVIRUS COLITIS
     Dosage: UNK
     Route: 042
     Dates: start: 20161125, end: 20161125
  5. FOSCARNET [Concomitant]
     Active Substance: FOSCARNET
     Indication: CYTOMEGALOVIRUS COLITIS
     Dosage: UNK
     Dates: start: 20161202
  6. LINEZOLID. [Concomitant]
     Active Substance: LINEZOLID
     Indication: ENTEROCOCCAL INFECTION
     Dosage: UNK
     Dates: start: 20161201
  7. GANCICLOVIR. [Suspect]
     Active Substance: GANCICLOVIR
     Dosage: UNK
     Route: 042
     Dates: start: 20161128, end: 20161128
  8. VANCOMYCIN [Concomitant]
     Active Substance: VANCOMYCIN
     Indication: EVIDENCE BASED TREATMENT
     Dosage: UNK
     Dates: start: 20170211

REACTIONS (6)
  - Enterocolitis infectious [Recovering/Resolving]
  - Hypotension [Unknown]
  - Aspiration [Unknown]
  - Hypoxia [Not Recovered/Not Resolved]
  - Febrile neutropenia [Recovered/Resolved]
  - Death [Fatal]

NARRATIVE: CASE EVENT DATE: 20161201
